FAERS Safety Report 8417971-9 (Version None)
Quarter: 2012Q2

REPORT INFORMATION
  Report Type: 
  Country: None (occurrence: None)
  Receive Date: 20120531
  Receipt Date: 20120531
  Transmission Date: 20120825
  Serious: No
  Sender: FDA-Public Use
  Company Number: None

PATIENT
  Age: 53 Year
  Sex: Female
  Weight: 68.9467 kg

DRUGS (1)
  1. BYDUREON [Suspect]

REACTIONS (2)
  - HEADACHE [None]
  - SENSATION OF PRESSURE [None]
